FAERS Safety Report 8267818-9 (Version None)
Quarter: 2012Q2

REPORT INFORMATION
  Report Type: 
  Country: None (occurrence: None)
  Receive Date: 20120409
  Receipt Date: 20120404
  Transmission Date: 20120825
  Serious: Yes (Life-Threatening)
  Sender: FDA-Public Use
  Company Number: FR-ASTRAZENECA-2012SE21893

PATIENT
  Age: 60 Year
  Sex: Male

DRUGS (4)
  1. QUETIAPINE FUMARATE [Suspect]
     Indication: BIPOLAR I DISORDER
     Dosage: DOSE PROGRESSIVELY INCREASED
     Route: 048
  2. HAVLANE [Suspect]
     Route: 048
  3. PRAZEPAM [Suspect]
     Route: 048
  4. DEPAKOTE [Suspect]
     Route: 048

REACTIONS (2)
  - SUICIDE ATTEMPT [None]
  - OVERDOSE [None]
